FAERS Safety Report 24567568 (Version 3)
Quarter: 2025Q1

REPORT INFORMATION
  Report Type: Report from Study
  Country: CA (occurrence: CA)
  Receive Date: 20241031
  Receipt Date: 20250113
  Transmission Date: 20250408
  Serious: Yes (Hospitalization, Other)
  Sender: JOHNSON AND JOHNSON
  Company Number: CA-JNJFOC-20240832866

PATIENT
  Age: 52 Year
  Sex: Female

DRUGS (9)
  1. STELARA [Suspect]
     Active Substance: USTEKINUMAB
     Indication: Crohn^s disease
     Route: 058
     Dates: start: 20240319
  2. STELARA [Suspect]
     Active Substance: USTEKINUMAB
     Route: 058
  3. STELARA [Suspect]
     Active Substance: USTEKINUMAB
     Route: 058
  4. STELARA [Suspect]
     Active Substance: USTEKINUMAB
     Dosage: LAST ADMINISTRATION WAS ON 11-JUN-2024
     Route: 058
     Dates: start: 20240319
  5. STELARA [Suspect]
     Active Substance: USTEKINUMAB
     Route: 058
     Dates: start: 20240228
  6. DEXILANT [Concomitant]
     Active Substance: DEXLANSOPRAZOLE
  7. IVABRADINE [Concomitant]
     Active Substance: IVABRADINE
  8. BISOPROLOL [Concomitant]
     Active Substance: BISOPROLOL
  9. DOMPERIDONE [Concomitant]
     Active Substance: DOMPERIDONE

REACTIONS (8)
  - Clostridium difficile infection [Not Recovered/Not Resolved]
  - COVID-19 [Recovered/Resolved]
  - Sepsis [Unknown]
  - Urinary tract infection [Not Recovered/Not Resolved]
  - Vascular device infection [Recovered/Resolved]
  - Colitis ulcerative [Unknown]
  - Crohn^s disease [Not Recovered/Not Resolved]
  - Bacteraemia [Unknown]

NARRATIVE: CASE EVENT DATE: 20240101
